FAERS Safety Report 9435192 (Version 1)
Quarter: 2013Q3

REPORT INFORMATION
  Report Type: Spontaneous
  Country: US (occurrence: US)
  Receive Date: 20130801
  Receipt Date: 20130801
  Transmission Date: 20140515
  Serious: No
  Sender: FDA-Public Use
  Company Number: US-BAYER-2013-092738

PATIENT
  Age: 20 Year
  Sex: Female
  Weight: 100 kg

DRUGS (1)
  1. MIDOL EXTENDED RELIEF CAPLET [Suspect]
     Dosage: 2 DF, TID
     Route: 048
     Dates: start: 20130728

REACTIONS (3)
  - Abdominal pain [Not Recovered/Not Resolved]
  - Extra dose administered [None]
  - Vomiting [Recovered/Resolved]
